FAERS Safety Report 21299647 (Version 1)
Quarter: 2022Q3

REPORT INFORMATION
  Report Type: Report from Study
  Country: DE (occurrence: DE)
  Receive Date: 20220906
  Receipt Date: 20220906
  Transmission Date: 20221027
  Serious: Yes (Other)
  Sender: FDA-Public Use
  Company Number: DE-GLAXOSMITHKLINE-DECH2022GSK031502

PATIENT

DRUGS (2)
  1. IBUPROFEN [Suspect]
     Active Substance: IBUPROFEN
     Indication: Systemic lupus erythematosus
     Dosage: UNK UNK, PRN
     Route: 064
  2. METAMIZOLE [Suspect]
     Active Substance: METAMIZOLE
     Indication: Pyrexia
     Dosage: 4000 MG
     Route: 064

REACTIONS (3)
  - Patent ductus arteriosus [Unknown]
  - Premature baby [Unknown]
  - Foetal exposure during pregnancy [Unknown]
